FAERS Safety Report 7563053-8 (Version None)
Quarter: 2011Q2

REPORT INFORMATION
  Report Type: 
  Country: None (occurrence: None)
  Receive Date: 20110622
  Receipt Date: 20110615
  Transmission Date: 20111010
  Serious: Yes (Hospitalization, Other)
  Sender: FDA-Public Use
  Company Number: US-PURDUE-USA-2011-0068707

PATIENT
  Sex: Male

DRUGS (1)
  1. OXYCONTIN [Suspect]
     Indication: PRODUCT USED FOR UNKNOWN INDICATION
     Dosage: 80 MG, Q12H
     Route: 048

REACTIONS (9)
  - HERNIA [None]
  - AGGRESSION [None]
  - LOSS OF CONSCIOUSNESS [None]
  - DRUG WITHDRAWAL SYNDROME [None]
  - SUICIDAL BEHAVIOUR [None]
  - VOMITING [None]
  - VICTIM OF CRIME [None]
  - STRESS [None]
  - ABNORMAL BEHAVIOUR [None]
